FAERS Safety Report 4662258-3 (Version None)
Quarter: 2005Q2

REPORT INFORMATION
  Report Type: 
  Country: None (occurrence: None)
  Receive Date: 20050512
  Receipt Date: 20050429
  Transmission Date: 20051028
  Serious: Yes (Other)
  Sender: FDA-Public Use
  Company Number: 2005068444

PATIENT
  Age: 44 Year
  Sex: Female
  Weight: 48.9885 kg

DRUGS (3)
  1. DIFLUCAN [Suspect]
     Indication: COCCIDIOIDOMYCOSIS
     Dosage: 400 MG (400 MG, EVERY DAY)
     Dates: start: 20050407
  2. ANOVLAR (ETHINYLESTRADIOL, NORETHISTERONE ACETATE) [Concomitant]
  3. PANTOPRAZOLE SODIUM [Concomitant]

REACTIONS (2)
  - BLOOD PRESSURE INCREASED [None]
  - THERAPY NON-RESPONDER [None]
